FAERS Safety Report 13380496 (Version 1)
Quarter: 2017Q1

REPORT INFORMATION
  Report Type: Spontaneous
  Country: US (occurrence: US)
  Receive Date: 20170329
  Receipt Date: 20170329
  Transmission Date: 20170429
  Serious: Yes (Life-Threatening, Hospitalization)
  Sender: FDA-Public Use
  Company Number: US-ROCHE-1911128

PATIENT
  Age: 7 Year
  Sex: Male

DRUGS (1)
  1. ACTEMRA [Suspect]
     Active Substance: TOCILIZUMAB
     Indication: JUVENILE IDIOPATHIC ARTHRITIS
     Dosage: 8 MG/KG
     Route: 042
     Dates: start: 201609

REACTIONS (3)
  - Interstitial lung disease [Unknown]
  - Respiratory distress [Unknown]
  - Pneumonia viral [Unknown]

NARRATIVE: CASE EVENT DATE: 201612
